FAERS Safety Report 14288006 (Version 1)
Quarter: 2017Q4

REPORT INFORMATION
  Report Type: Spontaneous
  Country: US (occurrence: US)
  Receive Date: 20171214
  Receipt Date: 20171214
  Transmission Date: 20180321
  Serious: No
  Sender: FDA-Public Use
  Company Number: US-PERRIGO-17US025015

PATIENT
  Age: 80 Year
  Sex: Female
  Weight: 48.73 kg

DRUGS (4)
  1. BACITRACIN. [Suspect]
     Active Substance: BACITRACIN
     Indication: EYE IRRITATION
     Dosage: SMALL AMOUNT TO LEFT EYE, SINGLE
     Route: 047
     Dates: start: 20170707, end: 20170707
  2. DRUGS FOR OBSTRUCTIVE AIRWAY DISEASES [Concomitant]
     Indication: CHRONIC OBSTRUCTIVE PULMONARY DISEASE
     Dosage: UNK
     Route: 065
  3. ANTIHYPERTENSIVES [Concomitant]
     Active Substance: UNSPECIFIED INGREDIENT
     Indication: HYPERTENSION
     Dosage: UNK
     Route: 065
  4. BACITRACIN. [Suspect]
     Active Substance: BACITRACIN
     Dosage: SMALL AMOUNT TO LEFT EYE, TWICE
     Route: 047
     Dates: start: 20170708, end: 20170708

REACTIONS (4)
  - Off label use [Not Recovered/Not Resolved]
  - Eye pruritus [Not Recovered/Not Resolved]
  - Ocular hyperaemia [Recovering/Resolving]
  - Eye swelling [Recovering/Resolving]

NARRATIVE: CASE EVENT DATE: 20170707
